FAERS Safety Report 8510115-4 (Version None)
Quarter: 2012Q3

REPORT INFORMATION
  Report Type: 
  Country: None (occurrence: None)
  Receive Date: 20120713
  Receipt Date: 20120705
  Transmission Date: 20120928
  Serious: Yes (Hospitalization)
  Sender: FDA-Public Use
  Company Number: RS-ROCHE-1007643

PATIENT
  Sex: Male
  Weight: 82 kg

DRUGS (4)
  1. BLINDED OCRELIZUMAB [Suspect]
     Indication: RELAPSING-REMITTING MULTIPLE SCLEROSIS
     Dosage: LAST DOSE PRIOR TO SAE: 10/AUG/2009
     Route: 042
     Dates: start: 20090727
  2. BLINDED OCRELIZUMAB [Suspect]
     Dosage: LAST DOSE PRIOR TO SAE: 24/JUN/2010
     Route: 042
     Dates: start: 20100115
  3. INTERFERON BETA-1A [Suspect]
     Indication: RELAPSING-REMITTING MULTIPLE SCLEROSIS
     Dates: start: 20090209
  4. CLONAZEPAM [Suspect]
     Indication: RELAPSING-REMITTING MULTIPLE SCLEROSIS
     Route: 048
     Dates: start: 20101207, end: 20111018

REACTIONS (1)
  - DRUG WITHDRAWAL SYNDROME [None]
